FAERS Safety Report 6674386-1 (Version None)
Quarter: 2010Q2

REPORT INFORMATION
  Report Type: 
  Country: None (occurrence: None)
  Receive Date: 20100409
  Receipt Date: 20100329
  Transmission Date: 20101027
  Serious: Yes (Other)
  Sender: FDA-Public Use
  Company Number: US-PFIZER INC-2010027016

PATIENT
  Sex: Female
  Weight: 86.168 kg

DRUGS (1)
  1. XALATAN [Suspect]
     Indication: GLAUCOMA
     Dosage: 1 DROP IN EACH EYE
     Dates: start: 20090601

REACTIONS (14)
  - ASTHENIA [None]
  - DIZZINESS [None]
  - EAR PAIN [None]
  - EYE DISORDER [None]
  - EYE PAIN [None]
  - GAIT DISTURBANCE [None]
  - HEADACHE [None]
  - HYPERHIDROSIS [None]
  - HYPOAESTHESIA [None]
  - HYPOAESTHESIA EYE [None]
  - PAIN IN JAW [None]
  - SCAR [None]
  - THOUGHT BLOCKING [None]
  - TOOTHACHE [None]
